FAERS Safety Report 7268879-6 (Version None)
Quarter: 2011Q1

REPORT INFORMATION
  Report Type: 
  Country: None (occurrence: None)
  Receive Date: 20110201
  Receipt Date: 20101229
  Transmission Date: 20110831
  Serious: Yes (Hospitalization)
  Sender: FDA-Public Use
  Company Number: US-BAYER-200938773NA

PATIENT
  Sex: Female
  Weight: 59 kg

DRUGS (3)
  1. ADVIL MIGRAINE LIQUI-GELS [Concomitant]
     Indication: HEADACHE
     Dosage: UNK
     Dates: start: 20060101
  2. ZANAFLEX [Concomitant]
     Indication: HEADACHE
  3. YAZ [Suspect]
     Indication: PRODUCT USED FOR UNKNOWN INDICATION
     Dosage: UNK UNK, QD
     Route: 048
     Dates: start: 20080501, end: 20081001

REACTIONS (5)
  - CHOLECYSTITIS ACUTE [None]
  - ABDOMINAL PAIN UPPER [None]
  - CHOLELITHIASIS [None]
  - NAUSEA [None]
  - CHILLS [None]
